FAERS Safety Report 10218481 (Version 2)
Quarter: 2014Q2

REPORT INFORMATION
  Report Type: Spontaneous
  Country: JP (occurrence: JP)
  Receive Date: 20140605
  Receipt Date: 20140605
  Transmission Date: 20141212
  Serious: Yes (Hospitalization)
  Sender: FDA-Public Use
  Company Number: JP-BAYER-2014-072247

PATIENT
  Age: 76 Year
  Sex: Male
  Weight: 61 kg

DRUGS (7)
  1. XARELTO [Suspect]
     Indication: CEREBROVASCULAR ACCIDENT PROPHYLAXIS
     Dosage: 10 MG, DAILY DOSE
     Route: 048
     Dates: start: 20130921, end: 20140411
  2. BAYASPIRIN [Interacting]
     Indication: CEREBRAL INFARCTION
     Dosage: DAILY DOSE 100 MG
     Route: 048
     Dates: start: 20130908, end: 20140411
  3. BAYASPIRIN [Interacting]
     Indication: CORONARY ARTERIAL STENT INSERTION
  4. AMLODIPINE BESYLATE [Concomitant]
     Indication: HYPERTENSION
     Dosage: DAILY DOSE 5 MG
     Route: 048
     Dates: start: 20130908
  5. NICORANDIL [Concomitant]
     Indication: CORONARY ARTERY DILATATION
     Dosage: DAILY DOSE 15 MG
     Route: 048
     Dates: start: 20130908
  6. TAKEPRON [Concomitant]
     Indication: PROPHYLAXIS AGAINST GASTROINTESTINAL ULCER
     Dosage: DAILY DOSE 15 MG
     Route: 048
     Dates: start: 20130912
  7. CRESTOR [Concomitant]
     Indication: HYPERCHOLESTEROLAEMIA
     Dosage: DAILY DOSE 5 MG
     Route: 048
     Dates: start: 20130912

REACTIONS (3)
  - Gastrointestinal haemorrhage [Recovering/Resolving]
  - Cardiac failure [Recovering/Resolving]
  - Drug interaction [None]
